FAERS Safety Report 9989327 (Version 1)
Quarter: 2014Q1

REPORT INFORMATION
  Report Type: Spontaneous
  Country: US (occurrence: None)
  Receive Date: 20140123
  Receipt Date: 20140123
  Transmission Date: 20141002
  Serious: Yes (Hospitalization)
  Sender: FDA-Public Use
  Company Number: UTC-033492

PATIENT
  Age: 33 Year
  Sex: Female
  Weight: 166.8 kg

DRUGS (5)
  1. REMODULIN [Suspect]
     Indication: PULMONARY ARTERIAL HYPERTENSION
     Route: 041
     Dates: start: 20110713
  2. ADCIRCA (TADALAFIL) [Concomitant]
  3. REVATIO (SILDENAFIL CITRATE) [Concomitant]
  4. TRACLEER (BOSENTAN) [Concomitant]
  5. WARFARIN (UNKNOWN) [Concomitant]

REACTIONS (1)
  - Dizziness [None]
